FAERS Safety Report 8176478 (Version 7)
Quarter: 2014Q4

REPORT INFORMATION
  Report Type: Spontaneous
  Country: US (occurrence: US)
  Receive Date: 20111011
  Receipt Date: 20141029
  Transmission Date: 20150529
  Serious: Yes (Hospitalization, Disabling, Other)
  Sender: FDA-Public Use
  Company Number: US-009507513-1110USA01114

PATIENT
  Sex: Female
  Weight: 90.27 kg

DRUGS (3)
  1. FOSAMAX [Suspect]
     Active Substance: ALENDRONATE SODIUM
     Indication: OSTEOPOROSIS
     Dosage: 70 MG, UNK
     Route: 048
     Dates: start: 1998, end: 20091003
  2. ALENDRONATE SODIUM. [Suspect]
     Active Substance: ALENDRONATE SODIUM
     Dosage: 70 MG, UNK
     Route: 048
     Dates: start: 20081008
  3. FOSAMAX [Suspect]
     Active Substance: ALENDRONATE SODIUM
     Indication: OSTEOPENIA
     Dosage: 10 MG, QD
     Route: 048

REACTIONS (52)
  - Intramedullary rod insertion [Unknown]
  - Procedural pain [Recovered/Resolved]
  - Osteoarthritis [Not Recovered/Not Resolved]
  - Nasopharyngitis [Unknown]
  - Tonsillar disorder [Unknown]
  - Gastrooesophageal reflux disease [Unknown]
  - Anaemia postoperative [Recovered/Resolved]
  - Osteoarthritis [Unknown]
  - Hernia [Unknown]
  - Arthritis [Unknown]
  - Vaginal infection [Unknown]
  - Rotator cuff syndrome [Unknown]
  - Chondromalacia [Unknown]
  - Tibia fracture [Unknown]
  - Femur fracture [Recovered/Resolved]
  - Rotator cuff syndrome [Unknown]
  - Senile osteoporosis [Unknown]
  - Pain in extremity [Unknown]
  - Cystocele [Unknown]
  - Adverse event [Unknown]
  - Foot deformity [Unknown]
  - Hypercholesterolaemia [Unknown]
  - Joint effusion [Unknown]
  - Bursitis [Unknown]
  - Fibula fracture [Unknown]
  - Memory impairment [Unknown]
  - Peripheral swelling [Not Recovered/Not Resolved]
  - Musculoskeletal pain [Recovered/Resolved]
  - Constipation [Recovered/Resolved]
  - Urinary tract obstruction [Unknown]
  - Rectocele [Unknown]
  - Low turnover osteopathy [Not Recovered/Not Resolved]
  - Arthropathy [Unknown]
  - Uterine disorder [Unknown]
  - Osteoarthritis [Unknown]
  - Angiopathy [Unknown]
  - Radius fracture [Unknown]
  - Urinary retention [Recovered/Resolved]
  - Uterovaginal prolapse [Unknown]
  - Gastrointestinal haemorrhage [Unknown]
  - Osteoarthritis [Unknown]
  - Urinary tract infection [Recovered/Resolved]
  - Fall [Unknown]
  - Ligament sprain [Unknown]
  - Body height abnormal [Unknown]
  - Arthralgia [Unknown]
  - Hypocalcaemia [Recovered/Resolved]
  - Anaemia [Unknown]
  - Vitamin D deficiency [Unknown]
  - Neuropathy peripheral [Unknown]
  - Peptic ulcer [Not Recovered/Not Resolved]
  - Hypocalcaemia [Unknown]

NARRATIVE: CASE EVENT DATE: 1998
